FAERS Safety Report 23775255 (Version 1)
Quarter: 2024Q2

REPORT INFORMATION
  Report Type: Spontaneous
  Country: US (occurrence: None)
  Receive Date: 20240423
  Receipt Date: 20240423
  Transmission Date: 20240716
  Serious: No
  Sender: FDA-Public Use
  Company Number: None

PATIENT
  Age: 76 Year
  Sex: Male
  Weight: 65.77 kg

DRUGS (3)
  1. LEVOFLOXACIN [Suspect]
     Active Substance: LEVOFLOXACIN
     Indication: Antibiotic therapy
     Dates: start: 20240306, end: 20240307
  2. ALFUZOSIN [Concomitant]
  3. ACETOMINOPHEN [Concomitant]

REACTIONS (2)
  - Dyspepsia [None]
  - Vomiting [None]
